FAERS Safety Report 9245362 (Version 1)
Quarter: 2013Q2

REPORT INFORMATION
  Report Type: Spontaneous
  Country: US (occurrence: US)
  Receive Date: 20130422
  Receipt Date: 20130422
  Transmission Date: 20140414
  Serious: Yes (Hospitalization)
  Sender: FDA-Public Use
  Company Number: US-GILEAD-2013-0073496

PATIENT
  Sex: Male

DRUGS (1)
  1. LETAIRIS [Suspect]
     Indication: PULMONARY ARTERIAL HYPERTENSION
     Dosage: 10 MG, QD
     Dates: start: 20091211

REACTIONS (6)
  - Gastrointestinal disorder [Unknown]
  - Hepatic lesion [Unknown]
  - Hepatic lesion [Unknown]
  - Unevaluable event [Unknown]
  - Inflammation [Unknown]
  - Cyst [Unknown]
